FAERS Safety Report 16308613 (Version 1)
Quarter: 2019Q2

REPORT INFORMATION
  Report Type: Spontaneous
  Country: JP (occurrence: JP)
  Receive Date: 20190514
  Receipt Date: 20190514
  Transmission Date: 20190711
  Serious: Yes (Death, Hospitalization, Other)
  Sender: FDA-Public Use
  Company Number: JP-MICRO LABS LIMITED-ML2019-01136

PATIENT
  Age: 45 Year
  Sex: Male

DRUGS (1)
  1. DIPHENHYDRAMINE HYDROCHLORIDE. [Suspect]
     Active Substance: DIPHENHYDRAMINE HYDROCHLORIDE

REACTIONS (8)
  - Hypotension [Fatal]
  - Acid-base balance disorder mixed [Unknown]
  - Renal impairment [Unknown]
  - Cardiac arrest [Fatal]
  - Hepatic function abnormal [Unknown]
  - Blood creatine phosphokinase [Unknown]
  - Rhabdomyolysis [Unknown]
  - Intentional overdose [Fatal]
